FAERS Safety Report 13050930 (Version 1)
Quarter: 2016Q4

REPORT INFORMATION
  Report Type: Spontaneous
  Country: FR (occurrence: FR)
  Receive Date: 20161221
  Receipt Date: 20161221
  Transmission Date: 20170207
  Serious: Yes (Hospitalization)
  Sender: FDA-Public Use
  Company Number: FR-PFIZER INC-2016583769

PATIENT
  Age: 65 Year
  Sex: Male

DRUGS (7)
  1. FLUOROURACIL. [Suspect]
     Active Substance: FLUOROURACIL
     Indication: COLON CANCER
     Dosage: 4650 MG, CYCLIC
     Route: 041
     Dates: start: 20161018, end: 20161020
  2. OXALIPLATIN. [Suspect]
     Active Substance: OXALIPLATIN
     Dosage: 165 MG, CYCLIC
     Route: 042
     Dates: start: 20161018, end: 20161018
  3. AVASTIN [Suspect]
     Active Substance: BEVACIZUMAB
     Indication: COLON CANCER
     Dosage: 350 MG, 1X/DAY
     Route: 042
     Dates: start: 20161018, end: 20161018
  4. ONDANSETRON [Suspect]
     Active Substance: ONDANSETRON
     Indication: CHEMOTHERAPY
     Dosage: 8 MG, CYCLIC
     Route: 042
     Dates: start: 20161018, end: 20161018
  5. SOLU-MEDROL [Suspect]
     Active Substance: METHYLPREDNISOLONE SODIUM SUCCINATE
     Indication: CHEMOTHERAPY
     Dosage: 1 DF, CYCLIC
     Route: 042
     Dates: start: 20161018, end: 20161018
  6. CALCIUM LEVOFOLINATE [Suspect]
     Active Substance: LEVOLEUCOVORIN CALCIUM
     Indication: CHEMOTHERAPY
     Dosage: 390 MG, CYCLIC
     Route: 042
     Dates: start: 20161018, end: 20161018
  7. POLARAMINE [Suspect]
     Active Substance: DEXCHLORPHENIRAMINE MALEATE
     Indication: CHEMOTHERAPY
     Dosage: 1 DF, CYCLIC
     Route: 042
     Dates: start: 20161018, end: 20161018

REACTIONS (4)
  - Somnolence [Recovered/Resolved]
  - Vomiting [Recovered/Resolved]
  - Clonus [Recovered/Resolved]
  - Prothrombin time shortened [Unknown]

NARRATIVE: CASE EVENT DATE: 20161020
